FAERS Safety Report 25246166 (Version 1)
Quarter: 2025Q2

REPORT INFORMATION
  Report Type: Spontaneous
  Country: US (occurrence: None)
  Receive Date: 20250428
  Receipt Date: 20250428
  Transmission Date: 20250717
  Serious: Yes (Death)
  Sender: FDA-CTU
  Company Number: None

PATIENT
  Age: 72 Year
  Sex: Female

DRUGS (9)
  1. COLLAGENASE SANTYL [Suspect]
     Active Substance: COLLAGENASE CLOSTRIDIUM HISTOLYTICUM
     Indication: Wound
     Dosage: NICKEL THICK LAYER  DAILY/TOPICAL ?
     Route: 061
     Dates: start: 20250408, end: 202504
  2. ALBUTEROL [Concomitant]
     Active Substance: ALBUTEROL
  3. medlhoney ound gel [Concomitant]
  4. PREDNISONE [Concomitant]
     Active Substance: PREDNISONE
  5. calcium ace [Concomitant]
  6. DONEPEZIL [Concomitant]
     Active Substance: DONEPEZIL
  7. AMLODIPINE [Concomitant]
     Active Substance: AMLODIPINE BESYLATE
  8. BACLOFEN [Concomitant]
     Active Substance: BACLOFEN
  9. VALSARTAN [Concomitant]
     Active Substance: VALSARTAN

REACTIONS (1)
  - Death [None]

NARRATIVE: CASE EVENT DATE: 20250401
